FAERS Safety Report 18011323 (Version 2)
Quarter: 2021Q2

REPORT INFORMATION
  Report Type: Spontaneous
  Country: CA (occurrence: CA)
  Receive Date: 20200712
  Receipt Date: 20210628
  Transmission Date: 20210717
  Serious: Yes (Life-Threatening, Hospitalization)
  Sender: FDA-Public Use
  Company Number: CA-TEVA-2020-CA-1798266

PATIENT
  Age: 7 Year
  Sex: Female
  Weight: 22 kg

DRUGS (31)
  1. GABAPENTIN. [Concomitant]
     Active Substance: GABAPENTIN
  2. HYDROCORTISONE. [Concomitant]
     Active Substance: HYDROCORTISONE
  3. MOXIFLOXACIN. [Concomitant]
     Active Substance: MOXIFLOXACIN
  4. TOBRAMYCIN. [Concomitant]
     Active Substance: TOBRAMYCIN
  5. L?ASPARAGINASE [Suspect]
     Active Substance: ASPARAGINASE
     Indication: ACUTE LYMPHOCYTIC LEUKAEMIA
     Dosage: 21000 IU
     Route: 030
  6. PREDNISOLONE. [Concomitant]
     Active Substance: PREDNISOLONE
  7. METHOTREXATE. [Suspect]
     Active Substance: METHOTREXATE
     Dosage: 0.085 GRAM
     Route: 042
  8. DIMENHYDRINATE. [Concomitant]
     Active Substance: DIMENHYDRINATE
  9. POTASSIUM [Concomitant]
     Active Substance: POTASSIUM
  10. SODIUM HYALURONATE [Concomitant]
     Active Substance: HYALURONATE SODIUM
  11. MELATONIN [Concomitant]
     Active Substance: MELATONIN
  12. METHOTREXATE. [Suspect]
     Active Substance: METHOTREXATE
     Dosage: 12 MG, 31 DAYS
     Route: 037
  13. EPINEPHRINE. [Concomitant]
     Active Substance: EPINEPHRINE
  14. MYCAMINE [Concomitant]
     Active Substance: MICAFUNGIN SODIUM
  15. VANCOMYCIN [Concomitant]
     Active Substance: VANCOMYCIN
  16. DIPHENHYDRAMINE. [Concomitant]
     Active Substance: DIPHENHYDRAMINE
  17. FUROSEMIDE. [Concomitant]
     Active Substance: FUROSEMIDE
  18. METHOTREXATE. [Suspect]
     Active Substance: METHOTREXATE
     Indication: ACUTE LYMPHOCYTIC LEUKAEMIA
     Dosage: 0.775 GRAM
     Route: 042
  19. CIPROFLOXACIN. [Concomitant]
     Active Substance: CIPROFLOXACIN
  20. LEUCOVORIN. [Concomitant]
     Active Substance: LEUCOVORIN
  21. ONDANSETRON [Concomitant]
     Active Substance: ONDANSETRON
  22. VINCRISTINE SULFATE. [Suspect]
     Active Substance: VINCRISTINE SULFATE
     Indication: ACUTE LYMPHOCYTIC LEUKAEMIA
     Dosage: 1 MG
     Route: 042
  23. CYTARABINE INJECTION [Suspect]
     Active Substance: CYTARABINE
     Dosage: 5000 MILLIGRAM DAILY;
     Route: 042
  24. CEFTAZIDIME. [Concomitant]
     Active Substance: CEFTAZIDIME
  25. DOCUSATE CALCIUM. [Concomitant]
     Active Substance: DOCUSATE CALCIUM
  26. ERYTHROMYCIN. [Concomitant]
     Active Substance: ERYTHROMYCIN
  27. HEPARIN CALCIUM [Concomitant]
     Active Substance: HEPARIN CALCIUM
  28. METOCLOPRAMIDE. [Concomitant]
     Active Substance: METOCLOPRAMIDE
  29. SULFAMETHOXAZOLE AND TRIMETHOPRIM [Concomitant]
     Active Substance: SULFAMETHOXAZOLE\TRIMETHOPRIM
  30. ACETAMINOPHEN. [Concomitant]
     Active Substance: ACETAMINOPHEN
  31. POLYETHYLENE GLYCOL [Concomitant]
     Active Substance: POLYETHYLENE GLYCOLS

REACTIONS (2)
  - Aplastic anaemia [Unknown]
  - Platelet transfusion [Unknown]
